FAERS Safety Report 4607959-8 (Version None)
Quarter: 2005Q2

REPORT INFORMATION
  Report Type: 
  Country: None (occurrence: None)
  Receive Date: 20050303
  Receipt Date: 20041112
  Transmission Date: 20051028
  Serious: No
  Sender: FDA-Public Use
  Company Number: 210398

PATIENT
  Age: 56 Year
  Sex: Female

DRUGS (5)
  1. XOLAIR [Suspect]
     Indication: ASTHMA
     Dosage: Q2W
     Dates: start: 20040101
  2. PREDNISONE [Concomitant]
  3. ADVAIR (FLUTICASONE PROPIONATE, SALMETEROL XINAFOATE) [Concomitant]
  4. FOSAMAX [Concomitant]
  5. ALLERGY SHOTS (ALLERGENIC EXTRACTS) [Concomitant]

REACTIONS (1)
  - DRUG INEFFECTIVE [None]
